FAERS Safety Report 24574367 (Version 4)
Quarter: 2025Q1

REPORT INFORMATION
  Report Type: Report from Study
  Country: JP (occurrence: JP)
  Receive Date: 20241104
  Receipt Date: 20250108
  Transmission Date: 20250409
  Serious: Yes (Life-Threatening, Hospitalization)
  Sender: ALEXION PHARMACEUTICALS
  Company Number: JP-ASTRAZENECA-240101363_013820_P_1

PATIENT
  Age: 81 Year
  Weight: 56 kg

DRUGS (15)
  1. ACALABRUTINIB [Suspect]
     Active Substance: ACALABRUTINIB
     Indication: Chronic lymphocytic leukaemia
     Dosage: 100 MILLIGRAM, BID
  2. CALONAL [Concomitant]
     Active Substance: ACETAMINOPHEN
  3. CALONAL [Concomitant]
     Active Substance: ACETAMINOPHEN
  4. DAYVIGO [Concomitant]
     Active Substance: LEMBOREXANT
  5. DAYVIGO [Concomitant]
     Active Substance: LEMBOREXANT
  6. PREDONINE [Concomitant]
     Active Substance: PREDNISOLONE
  7. PREDONINE [Concomitant]
     Active Substance: PREDNISOLONE
  8. PREDONINE [Concomitant]
     Active Substance: PREDNISOLONE
  9. FEBUXOSTAT [Concomitant]
     Active Substance: FEBUXOSTAT
     Indication: Tumour lysis syndrome
  10. FEBUXOSTAT [Concomitant]
     Active Substance: FEBUXOSTAT
  11. MAGNESIUM OXIDE [Concomitant]
     Active Substance: MAGNESIUM OXIDE
  12. MAGNESIUM OXIDE [Concomitant]
     Active Substance: MAGNESIUM OXIDE
  13. MOVICOL [Concomitant]
     Active Substance: POLYETHYLENE GLYCOL 3350\POTASSIUM CHLORIDE\SODIUM BICARBONATE\SODIUM CHLORIDE
  14. MOVICOL [Concomitant]
     Active Substance: POLYETHYLENE GLYCOL 3350\POTASSIUM CHLORIDE\SODIUM BICARBONATE\SODIUM CHLORIDE
  15. MAGNESIUM OXIDE [Concomitant]
     Active Substance: MAGNESIUM OXIDE

REACTIONS (5)
  - Neutrophil count decreased [Recovering/Resolving]
  - Head discomfort [Not Recovered/Not Resolved]
  - Oral discomfort [Recovered/Resolved]
  - Device dislocation [Recovered/Resolved]
  - Blood creatinine increased [Not Recovered/Not Resolved]
